FAERS Safety Report 6340699-6 (Version None)
Quarter: 2009Q3

REPORT INFORMATION
  Report Type: 
  Country: None (occurrence: None)
  Receive Date: 20090904
  Receipt Date: 20080208
  Transmission Date: 20100115
  Serious: Yes (Hospitalization, Other)
  Sender: FDA-Public Use
  Company Number: US-ASTRAZENECA-2007UW05648

PATIENT
  Age: 586 Month
  Sex: Female
  Weight: 100.7 kg

DRUGS (46)
  1. SEROQUEL [Suspect]
     Indication: DEPRESSION
     Route: 048
     Dates: start: 20000801
  2. SEROQUEL [Suspect]
     Route: 048
     Dates: start: 20000920
  3. SEROQUEL [Suspect]
     Route: 048
     Dates: start: 20010108
  4. SEROQUEL [Suspect]
     Route: 048
     Dates: start: 20020218
  5. SEROQUEL [Suspect]
     Dosage: 50 MG TWO TIMES A DAY AND 150 MG AT NIGHT
     Route: 048
     Dates: start: 20030331
  6. SEROQUEL [Suspect]
     Route: 048
     Dates: start: 20040723
  7. SEROQUEL [Suspect]
     Dosage: 125 MG 5 TABLETS AT NIGHT
     Route: 048
     Dates: start: 20040724
  8. SEROQUEL [Suspect]
     Route: 048
     Dates: start: 20050914
  9. SEROQUEL [Suspect]
     Route: 048
     Dates: start: 20060610
  10. SEROQUEL [Suspect]
     Route: 048
     Dates: start: 20070813
  11. HYDROCODONE [Concomitant]
     Dosage: 5/500 TABLET DISPENSED
     Dates: start: 20000921
  12. CLONAZEPAM [Concomitant]
     Route: 048
     Dates: start: 20001112
  13. SALSALATE [Concomitant]
     Route: 048
     Dates: start: 20001218
  14. PREVACID [Concomitant]
     Route: 048
     Dates: start: 20010111
  15. EFFEXOR XR [Concomitant]
     Dosage: 75 MG - 300 MG
     Route: 048
     Dates: start: 20010129
  16. ZAROXOLYN [Concomitant]
     Dosage: 2.5 MG - 5 MG
     Route: 048
     Dates: start: 20010302
  17. FUROSEMIDE [Concomitant]
     Route: 048
     Dates: start: 20010302
  18. IBUPROFEN [Concomitant]
     Route: 048
     Dates: start: 20010407
  19. SPIRONOLACTONE [Concomitant]
     Dosage: 25 MG - 100 MG
     Route: 048
     Dates: start: 20010606
  20. PROTONIX [Concomitant]
     Route: 048
     Dates: start: 20010815
  21. AVANDIA [Concomitant]
     Dosage: 4 MG - 8 MG
     Route: 048
     Dates: start: 20011022
  22. GLIPIZIDE [Concomitant]
     Dosage: 5 MG - 10 MG
     Route: 048
     Dates: start: 20011128
  23. BEXTRA [Concomitant]
     Route: 048
     Dates: start: 20020803
  24. REBETOL [Concomitant]
     Route: 048
     Dates: start: 20010820
  25. STARLIX [Concomitant]
     Route: 048
     Dates: start: 20021118
  26. OXYCODONE [Concomitant]
     Dosage: 5 MG - 20 MG
     Route: 048
     Dates: start: 20000927
  27. ZETIA [Concomitant]
     Route: 048
     Dates: start: 20060606
  28. NEURONTIN [Concomitant]
     Route: 048
     Dates: start: 20060606
  29. DETROL [Concomitant]
     Dosage: 2 MG - 25 MG
     Route: 048
     Dates: start: 20040302
  30. REMERON [Concomitant]
     Dosage: 15 MG - 45 MG
     Route: 048
     Dates: start: 20040330
  31. XIFAXAN [Concomitant]
     Route: 048
     Dates: start: 20070219
  32. ATIVAN [Concomitant]
     Route: 048
     Dates: start: 20070124
  33. LEVSIN [Concomitant]
     Dosage: 0.125 MG, ONE BEFORE MEALS, THREE TIMES A DAY AND AT BEDTIME
     Route: 048
     Dates: start: 20061222
  34. CORGARD [Concomitant]
     Route: 048
     Dates: start: 20070306
  35. LYRICA [Concomitant]
     Route: 048
     Dates: start: 20070801
  36. INSULIN [Concomitant]
     Route: 058
     Dates: start: 20070801
  37. LANTUS [Concomitant]
     Dosage: 22-30 IU
     Route: 058
     Dates: start: 20040330
  38. AMARYL [Concomitant]
     Route: 048
  39. PROMETHAZINE [Concomitant]
     Route: 048
  40. CELEXA [Concomitant]
     Route: 048
     Dates: start: 20071122
  41. ULTRAM [Concomitant]
     Route: 048
  42. ALTACE [Concomitant]
     Route: 048
     Dates: start: 20040330
  43. AMBIEN [Concomitant]
     Route: 048
     Dates: start: 20040330
  44. BACLOFEN [Concomitant]
     Route: 048
     Dates: start: 20040330
  45. LACTULOSE [Concomitant]
     Dosage: 2 TABLESPOONS THREE TIMES A DAY
     Route: 048
     Dates: start: 20040716
  46. PRECOSE [Concomitant]
     Route: 048

REACTIONS (7)
  - DIABETES MELLITUS [None]
  - DIABETES MELLITUS INADEQUATE CONTROL [None]
  - DIABETIC NEUROPATHY [None]
  - HYPERGLYCAEMIC HYPEROSMOLAR NONKETOTIC SYNDROME [None]
  - INSULIN-REQUIRING TYPE 2 DIABETES MELLITUS [None]
  - TYPE 1 DIABETES MELLITUS [None]
  - TYPE 2 DIABETES MELLITUS [None]
